FAERS Safety Report 8502640-7 (Version None)
Quarter: 2012Q3

REPORT INFORMATION
  Report Type: 
  Country: None (occurrence: None)
  Receive Date: 20120711
  Receipt Date: 20120702
  Transmission Date: 20120928
  Serious: Yes (Hospitalization)
  Sender: FDA-Public Use
  Company Number: BR-SANOFI-AVENTIS-2012SA047243

PATIENT
  Age: 12 Year
  Sex: Female
  Weight: 48 kg

DRUGS (5)
  1. LANTUS [Suspect]
     Route: 058
  2. LANTUS [Suspect]
     Indication: TYPE 1 DIABETES MELLITUS
     Route: 058
     Dates: start: 20080101
  3. LANTUS [Suspect]
     Route: 058
     Dates: start: 20120101
  4. CLIKSTAR [Suspect]
     Indication: DEVICE THERAPY
     Dates: start: 20080101
  5. HUMALOG [Concomitant]
     Route: 058
     Dates: start: 20020101

REACTIONS (4)
  - BLOOD KETONE BODY INCREASED [None]
  - DRUG INEFFECTIVE [None]
  - VOMITING [None]
  - HYPERGLYCAEMIA [None]
